FAERS Safety Report 8831296 (Version 7)
Quarter: 2013Q3

REPORT INFORMATION
  Report Type: Report from Study
  Country: DE (occurrence: DE)
  Receive Date: 20121009
  Receipt Date: 20130808
  Transmission Date: 20140515
  Serious: Yes (Hospitalization)
  Sender: FDA-Public Use
  Company Number: PHHY2012DE084955

PATIENT
  Age: 74 Year
  Sex: Male
  Weight: 81 kg

DRUGS (17)
  1. AMN107 [Suspect]
     Indication: CHRONIC MYELOID LEUKAEMIA
     Dosage: 800 MG, PER DAY
     Route: 048
     Dates: start: 20110715, end: 20110816
  2. AMN107 [Suspect]
     Dosage: 800 MG, PER DAY
     Route: 048
     Dates: start: 20110901
  3. LEVOFLOXACIN [Concomitant]
     Dates: start: 20110811, end: 20110822
  4. SOTALOL [Concomitant]
     Indication: TREMOR
     Dosage: 40 MG, DAILY
     Route: 048
     Dates: start: 20110628
  5. SOTALOL [Concomitant]
     Dosage: 40 MG, QD
     Dates: start: 20110723
  6. CARBIMAZOLE [Concomitant]
     Indication: HYPERTHYROIDISM
     Dosage: 10 MG, DAILY
     Route: 048
     Dates: start: 20110715
  7. RIVOTRIL [Concomitant]
     Dates: start: 201109, end: 20111007
  8. BETAHISTIN PLIVA [Concomitant]
     Dates: start: 20111206, end: 20120531
  9. PANTOZOL                           /02692601/ [Concomitant]
     Dates: start: 20111206, end: 20120531
  10. TAMSULOSIN [Concomitant]
     Dates: start: 20111206
  11. CARBAMAZEPIN [Concomitant]
     Dates: start: 20120601, end: 20120615
  12. OMEPRAZOL//OMEPRAZOLE [Concomitant]
     Dates: start: 20120601
  13. ETILEFRIN [Concomitant]
     Dates: start: 20120601, end: 20130705
  14. TAVEGIL                                 /GFR/ [Concomitant]
     Dates: start: 20120907
  15. SURGAM [Concomitant]
     Dates: start: 20121221
  16. TEPILTA [Concomitant]
     Dates: start: 20120907
  17. ARLEVERT [Concomitant]
     Dates: start: 20130401

REACTIONS (2)
  - Epididymitis [Recovered/Resolved]
  - Blood bilirubin increased [Not Recovered/Not Resolved]
